FAERS Safety Report 8741869 (Version 4)
Quarter: 2012Q4

REPORT INFORMATION
  Report Type: 
  Country: US (occurrence: US)
  Receive Date: 20120824
  Receipt Date: 20121210
  Transmission Date: 20130627
  Serious: No
  Sender: FDA-Public Use
  Company Number: US-PFIZER INC-2012206736

PATIENT
  Age: 16 Year
  Sex: Female

DRUGS (7)
  1. EFFEXOR [Suspect]
     Indication: DEPRESSION
     Dosage: UNK
     Route: 048
  2. EFFEXOR XR [Suspect]
     Indication: DEPRESSION
     Dosage: 37.5 mg, 1x/day
     Dates: start: 20120623, end: 201206
  3. EFFEXOR XR [Suspect]
     Dosage: 75 mg, 1x/day for 1 week
     Dates: start: 201206, end: 201207
  4. EFFEXOR XR [Suspect]
     Dosage: 150 mg, 1x/day
     Route: 048
     Dates: start: 201207
  5. EFFEXOR XR [Suspect]
     Dosage: 225 mg, 1x/day
     Route: 048
  6. MINOCYCLINE [Concomitant]
     Dosage: UNK
  7. YAZ [Concomitant]
     Dosage: UNK

REACTIONS (2)
  - Alopecia [Not Recovered/Not Resolved]
  - Hair colour changes [Not Recovered/Not Resolved]
